FAERS Safety Report 20763218 (Version 7)
Quarter: 2022Q4

REPORT INFORMATION
  Report Type: Spontaneous
  Country: US (occurrence: US)
  Receive Date: 20220428
  Receipt Date: 20221229
  Transmission Date: 20230113
  Serious: Yes (Other)
  Sender: FDA-Public Use
  Company Number: US-PFIZER INC-202200629943

PATIENT
  Age: 52 Year
  Sex: Female

DRUGS (2)
  1. XELJANZ XR [Suspect]
     Active Substance: TOFACITINIB CITRATE
     Indication: Rheumatoid arthritis
     Dosage: 11 MG, ALTERNATE DAY (ONCE EVERY OTHER DAY)
     Route: 048
     Dates: start: 20220502
  2. XELJANZ XR [Suspect]
     Active Substance: TOFACITINIB CITRATE
     Dosage: 11 MG, DAILY
     Route: 048
     Dates: start: 202205, end: 20220926

REACTIONS (15)
  - Rheumatoid arthritis [Unknown]
  - Intentional product misuse [Unknown]
  - Product dose omission in error [Unknown]
  - Nausea [Unknown]
  - Decreased appetite [Unknown]
  - Tongue disorder [Unknown]
  - Feeling abnormal [Unknown]
  - COVID-19 [Unknown]
  - Influenza [Unknown]
  - Fatigue [Unknown]
  - Back pain [Unknown]
  - Headache [Unknown]
  - Abdominal pain upper [Unknown]
  - Oral pain [Unknown]
  - Drug hypersensitivity [Unknown]

NARRATIVE: CASE EVENT DATE: 20220101
